FAERS Safety Report 11872573 (Version 1)
Quarter: 2015Q4

REPORT INFORMATION
  Report Type: Spontaneous
  Country: NO (occurrence: NO)
  Receive Date: 20151228
  Receipt Date: 20151228
  Transmission Date: 20160305
  Serious: Yes (Other)
  Sender: FDA-Public Use
  Company Number: NO-PURDUE PHARMA-GBR-2015-0032013

PATIENT
  Sex: Male

DRUGS (4)
  1. ORFIRIL [Concomitant]
     Active Substance: VALPROIC ACID
  2. NORSPAN [Suspect]
     Active Substance: BUPRENORPHINE
     Indication: PAIN
     Dosage: 10 MCG, Q1H
     Route: 062
     Dates: start: 20150924, end: 20151102
  3. APIXABAN [Concomitant]
     Active Substance: APIXABAN
  4. LIPITOR [Concomitant]
     Active Substance: ATORVASTATIN CALCIUM

REACTIONS (4)
  - Drug administration error [Unknown]
  - Accidental overdose [Recovering/Resolving]
  - Delirium [Recovering/Resolving]
  - Sedation [Recovering/Resolving]
